FAERS Safety Report 24440656 (Version 2)
Quarter: 2024Q4

REPORT INFORMATION
  Report Type: Report from Study
  Country: JP (occurrence: JP)
  Receive Date: 20241016
  Receipt Date: 20241017
  Transmission Date: 20250114
  Serious: No
  Sender: ROCHE
  Company Number: JP-CHUGAI-2021000561

PATIENT
  Age: 2 Year
  Sex: Male
  Weight: 13.5 kg

DRUGS (4)
  1. HEMLIBRA [Suspect]
     Active Substance: EMICIZUMAB-KXWH
     Indication: Haemophilia A with anti factor VIII
     Route: 058
     Dates: start: 20210211
  2. HEMLIBRA [Suspect]
     Active Substance: EMICIZUMAB-KXWH
     Dosage: 3 MILLIGRAM/KILOGRAM, ONCE/2WEEKS
     Route: 058
     Dates: start: 2021
  3. ELOCTATE [Concomitant]
     Active Substance: EFMOROCTOCOG ALFA
     Indication: Immune tolerance induction
     Dosage: 55.6 INTERNATIONAL UNIT/KILOGRAM, TIW
     Route: 065
     Dates: start: 20210209
  4. ELOCTATE [Concomitant]
     Active Substance: EFMOROCTOCOG ALFA
     Dosage: 48 INTERNATIONAL UNIT/KILOGRAM, ONCE/WEEK
     Route: 065
     Dates: start: 20240305

REACTIONS (8)
  - Pyrexia [Unknown]
  - Influenza [Recovered/Resolved]
  - Upper respiratory tract inflammation [Recovered/Resolved]
  - Lymphadenitis [Recovered/Resolved]
  - Gastroenteritis [Recovered/Resolved]
  - Pyrexia [Recovered/Resolved]
  - COVID-19 [Recovered/Resolved]
  - Off label use [Unknown]

NARRATIVE: CASE EVENT DATE: 20210211
